FAERS Safety Report 9196224 (Version 3)
Quarter: 2013Q2

REPORT INFORMATION
  Report Type: Spontaneous
  Country: BR (occurrence: BR)
  Receive Date: 20130328
  Receipt Date: 20130416
  Transmission Date: 20140414
  Serious: Yes (Other)
  Sender: FDA-Public Use
  Company Number: BR-JNJFOC-20130313191

PATIENT
  Age: 61 Year
  Sex: Female
  Weight: 75 kg

DRUGS (2)
  1. TYLEX [Suspect]
     Indication: PAIN IN EXTREMITY
     Route: 048
     Dates: start: 20130318, end: 20130319
  2. HIGROTON [Concomitant]
     Indication: HYPERTENSION
     Dosage: TOOK WHEN BLOOD PRESSURE WAS GREATER THAN 140/90 (UNITS NOT REPORTED)
     Route: 065

REACTIONS (8)
  - Dyspnoea [Recovered/Resolved]
  - Adverse drug reaction [Recovered/Resolved]
  - Skin induration [Not Recovered/Not Resolved]
  - Feeling cold [Not Recovered/Not Resolved]
  - Asthenia [Recovered/Resolved]
  - Cold sweat [Recovered/Resolved]
  - Abdominal pain upper [Recovering/Resolving]
  - Pallor [Unknown]
